FAERS Safety Report 4833373-6 (Version None)
Quarter: 2005Q4

REPORT INFORMATION
  Report Type: 
  Country: None (occurrence: None)
  Receive Date: 20051117
  Receipt Date: 20051111
  Transmission Date: 20060501
  Serious: Yes (Other)
  Sender: FDA-Public Use
  Company Number: NLWYE141715NOV05

PATIENT
  Sex: Female

DRUGS (1)
  1. EFFEXOR XR [Suspect]
     Dosage: 75 MG 1X PER 1 DAY
     Route: 048
     Dates: end: 20050801

REACTIONS (2)
  - DRUG EXPOSURE DURING PREGNANCY [None]
  - LARYNGOMALACIA [None]
